FAERS Safety Report 5999858-4 (Version None)
Quarter: 2008Q4

REPORT INFORMATION
  Report Type: 
  Country: None (occurrence: None)
  Receive Date: 20081215
  Receipt Date: 20081211
  Transmission Date: 20090506
  Serious: Yes (Other)
  Sender: FDA-Public Use
  Company Number: GB-JNJFOC-20080205017

PATIENT
  Sex: Female
  Weight: 75 kg

DRUGS (5)
  1. ORTHO EVRA [Suspect]
     Indication: CONTRACEPTION
     Route: 062
  2. ACETAMINOPHEN W/ CODEINE [Concomitant]
     Indication: ABDOMINAL PAIN
     Route: 048
  3. FOLIC ACID [Concomitant]
     Indication: PREGNANCY
     Route: 048
  4. SENNA [Concomitant]
     Indication: PAIN
     Route: 048
  5. NICORETTE [Concomitant]
     Route: 055

REACTIONS (4)
  - ABDOMINAL PAIN [None]
  - ARRESTED LABOUR [None]
  - DRUG EXPOSURE DURING PREGNANCY [None]
  - PREGNANCY WITH CONTRACEPTIVE PATCH [None]
